FAERS Safety Report 21993956 (Version 2)
Quarter: 2023Q1

REPORT INFORMATION
  Report Type: Report from Study
  Country: IL (occurrence: IL)
  Receive Date: 20230215
  Receipt Date: 20230220
  Transmission Date: 20230418
  Serious: Yes (Hospitalization, Other)
  Sender: FDA-Public Use
  Company Number: IL-ABBVIE-4301126

PATIENT
  Age: 63 Year
  Sex: Male

DRUGS (2)
  1. CARBIDOPA\LEVODOPA [Suspect]
     Active Substance: CARBIDOPA\LEVODOPA
     Indication: Parkinson^s disease
     Dosage: MORNING DOSAGE(ML) 10.5, CONTINUOUS DOSAGE (ML/H)  5.5, EXTRA DOSAGE (ML)  2.5
     Route: 050
  2. CARBIDOPA\LEVODOPA [Suspect]
     Active Substance: CARBIDOPA\LEVODOPA
     Route: 050
     Dates: start: 20160109

REACTIONS (6)
  - Hypophagia [Unknown]
  - Asthenia [Unknown]
  - Hypertension [Unknown]
  - Dysphagia [Unknown]
  - General physical health deterioration [Unknown]
  - Laurence-Moon-Bardet-Biedl syndrome [Recovering/Resolving]

NARRATIVE: CASE EVENT DATE: 20230217
